FAERS Safety Report 25276325 (Version 1)
Quarter: 2025Q2

REPORT INFORMATION
  Report Type: Spontaneous
  Country: GB (occurrence: GB)
  Receive Date: 20250507
  Receipt Date: 20250507
  Transmission Date: 20250717
  Serious: Yes (Other)
  Sender: TEVA
  Company Number: GB-MHRA-TPP6524992C9823503YC1746188894007

PATIENT
  Age: 91 Year
  Sex: Male
  Weight: 99 kg

DRUGS (22)
  1. PREDNISOLONE [Suspect]
     Active Substance: PREDNISOLONE
     Indication: Product used for unknown indication
     Dosage: ...EACH MORNING FOR 5 DAYS (INFL..., 20 MG DAILY, DURATION: 6 DAYS
     Route: 065
     Dates: start: 20250423, end: 20250428
  2. AMLODIPINE [Concomitant]
     Active Substance: AMLODIPINE BESYLATE
     Indication: Ill-defined disorder
     Dosage: TAKE ONE IN THE MORNING AND ONE IN THE EVENING, 2 DOSAGE FORMS DAILY, DURATION?62 DAYS
     Dates: start: 20250213, end: 20250415
  3. MORPHINE SULFATE [Concomitant]
     Active Substance: MORPHINE SULFATE
     Indication: Ill-defined disorder
     Dates: start: 20250210, end: 20250225
  4. MINERAL OIL\PARAFFIN [Concomitant]
     Active Substance: MINERAL OIL\PARAFFIN
     Indication: Ill-defined disorder
     Dates: start: 20250207, end: 20250309
  5. POLYETHYLENE GLYCOL 3350\POTASSIUM CHLORIDE\SODIUM BICARBONATE\SODIUM [Concomitant]
     Active Substance: POLYETHYLENE GLYCOL 3350\POTASSIUM CHLORIDE\SODIUM BICARBONATE\SODIUM CHLORIDE
     Indication: Constipation
     Dosage: TAKE ONE SATCHET DAILY, 1 DOSAGE FORMS DAILY
     Dates: start: 20250415
  6. BUMETANIDE [Concomitant]
     Active Substance: BUMETANIDE
     Indication: Ill-defined disorder
     Dosage: TAKE ONE EACH MORNING AND ONE AT LUNCHTIME, 2 DOSAGE FORMS DAILY
     Dates: start: 20250410
  7. ACETAMINOPHEN [Concomitant]
     Active Substance: ACETAMINOPHEN
     Indication: Pain
     Dates: start: 20250422
  8. OXYBUTYNIN [Concomitant]
     Active Substance: OXYBUTYNIN
     Indication: Ill-defined disorder
     Dosage: TAKE ONE TABLET TWICE A DAY FOR INCREASED URINE..., DURATION: 15 DAYS, 2 DOSAGE FORMS DAILY
     Dates: start: 20250307, end: 20250321
  9. HYDROCORTISONE [Concomitant]
     Active Substance: HYDROCORTISONE
     Indication: Ill-defined disorder
     Dates: start: 20250403, end: 20250417
  10. IBUPROFEN [Concomitant]
     Active Substance: IBUPROFEN
     Indication: Ill-defined disorder
     Dates: start: 20250430
  11. FUROSEMIDE [Concomitant]
     Active Substance: FUROSEMIDE
     Indication: Ill-defined disorder
     Dosage: TAKE ONE EACH MORNING, 1 DOSAGE FORMS DAILY
     Dates: start: 20250410
  12. BETAMETHASONE VALERATE\FUSIDIC ACID [Concomitant]
     Active Substance: BETAMETHASONE VALERATE\FUSIDIC ACID
     Indication: Ill-defined disorder
     Dates: start: 20250328, end: 20250407
  13. HYDROMOL [Concomitant]
     Indication: Ill-defined disorder
     Dates: start: 20250409
  14. LANSOPRAZOLE [Concomitant]
     Active Substance: LANSOPRAZOLE
     Indication: Ill-defined disorder
     Dosage: ONE TO BE TAKEN EACH MORNING - INTERIM, 1 DOSAGE FORMS DAILY
     Dates: start: 20250106
  15. FLUCLOXACILLIN [Concomitant]
     Active Substance: FLUCLOXACILLIN
     Indication: Ill-defined disorder
     Dosage: TAKE ONE 4 TIMES/DAY FOR 7 DAYS, 4 DOSAGE FORMS DAILY, DURATION: 8 DAYS
     Dates: start: 20250423, end: 20250430
  16. DOXYCYCLINE [Concomitant]
     Active Substance: DOXYCYCLINE
     Indication: Ill-defined disorder
     Dosage: 1 TWICE A DAY FOR 7 DAYS, 2 DOSAGE FORMS DAILY, DURATION: 8 DAYS
     Dates: start: 20250328, end: 20250404
  17. APIXABAN [Concomitant]
     Active Substance: APIXABAN
     Indication: Ill-defined disorder
     Dates: start: 20250106
  18. DERMOL [Concomitant]
     Active Substance: BENZALKONIUM CHLORIDE\CHLORHEXIDINE HYDROCHLORIDE\ISOPROPYL MYRISTATE\PARAFFIN
     Indication: Ill-defined disorder
     Dates: start: 20250207, end: 20250309
  19. COCODAMOL [Concomitant]
     Active Substance: ACETAMINOPHEN\CODEINE PHOSPHATE
     Indication: Ill-defined disorder
     Dates: start: 20250220, end: 20250322
  20. CODEINE PHOSPHATE [Concomitant]
     Active Substance: CODEINE PHOSPHATE
     Indication: Pain
     Dates: start: 20250430
  21. ATORVASTATIN [Concomitant]
     Active Substance: ATORVASTATIN
     Indication: Ill-defined disorder
     Dosage: ONE TO BE TAKEN AT NIGHT, 1 DOSAGE FORMS DAILY
     Dates: start: 20250106
  22. DOXAZOSIN [Concomitant]
     Active Substance: DOXAZOSIN MESYLATE
     Indication: Ill-defined disorder
     Dosage: TWO TO BE TAKEN EACH MORNING (TOTAL DOSE 8MG),2 DOSAGE FORMS DAILY
     Dates: start: 20250106

REACTIONS (1)
  - Confusional state [Recovered/Resolved]
